FAERS Safety Report 24713956 (Version 2)
Quarter: 2025Q2

REPORT INFORMATION
  Report Type: Report from Study
  Country: US (occurrence: US)
  Receive Date: 20241209
  Receipt Date: 20250620
  Transmission Date: 20250716
  Serious: Yes (Hospitalization)
  Sender: EISAI
  Company Number: US-Eisai-EC-2024-180282

PATIENT
  Age: 64 Year
  Sex: Female
  Weight: 43.9 kg

DRUGS (11)
  1. LENVIMA [Suspect]
     Active Substance: LENVATINIB
     Indication: Hepatic cancer
     Dates: start: 20240708, end: 202411
  2. LENVIMA [Suspect]
     Active Substance: LENVATINIB
     Dates: start: 20241217
  3. CLONIDINE [Concomitant]
     Active Substance: CLONIDINE
  4. FENTANYL TRANSDERMAL SYSTEM [Concomitant]
     Active Substance: FENTANYL
  5. GABAPENTIN [Concomitant]
     Active Substance: GABAPENTIN
  6. LOSARTAN [Concomitant]
     Active Substance: LOSARTAN
  7. OXYCODONE [Concomitant]
     Active Substance: OXYCODONE
  8. VITAMINS [Concomitant]
     Active Substance: VITAMINS
  9. PRILOSEC [Concomitant]
     Active Substance: OMEPRAZOLE MAGNESIUM
  10. XANAX [Concomitant]
     Active Substance: ALPRAZOLAM
  11. ZOFRAN [Concomitant]
     Active Substance: ONDANSETRON HYDROCHLORIDE

REACTIONS (1)
  - Blood pressure increased [Unknown]

NARRATIVE: CASE EVENT DATE: 20241125
